FAERS Safety Report 7692296-8 (Version None)
Quarter: 2011Q3

REPORT INFORMATION
  Report Type: 
  Country: None (occurrence: None)
  Receive Date: 20110818
  Receipt Date: 20110805
  Transmission Date: 20111222
  Serious: Yes (Hospitalization)
  Sender: FDA-Public Use
  Company Number: TR-MYLANLABS-2011S1016395

PATIENT
  Age: 43 Year
  Sex: Male

DRUGS (2)
  1. INDOMETHACIN [Interacting]
     Indication: URINARY TRACT INFECTION
     Route: 065
  2. WARFARIN SODIUM [Suspect]
     Dosage: 7.5 MG/DAY FOR PAST 3 MONTHS
     Route: 065

REACTIONS (3)
  - RENAL HAEMATOMA [None]
  - RENAL FAILURE ACUTE [None]
  - DRUG INTERACTION [None]
